FAERS Safety Report 7971963-2 (Version None)
Quarter: 2011Q4

REPORT INFORMATION
  Report Type: 
  Country: None (occurrence: None)
  Receive Date: 20111212
  Receipt Date: 20111208
  Transmission Date: 20120403
  Serious: Yes (Hospitalization)
  Sender: FDA-Public Use
  Company Number: BR-ABBOTT-11P-020-0709373-00

PATIENT
  Sex: Male
  Weight: 101 kg

DRUGS (10)
  1. ENALAPRIL MALEATE [Concomitant]
     Indication: HYPERTENSION
     Route: 048
  2. HUMIRA [Suspect]
     Indication: RHEUMATOID ARTHRITIS
     Route: 058
     Dates: start: 20090614
  3. OMEPRAZOLE [Concomitant]
     Indication: PROPHYLAXIS
  4. CAPTOPRIL [Concomitant]
     Indication: HYPERTENSION
     Route: 048
     Dates: start: 20080101, end: 20100101
  5. PREDNISONE [Concomitant]
     Indication: PAIN
     Dosage: AS NEEDED
     Route: 048
     Dates: start: 20060101
  6. OMEPRAZOLE [Concomitant]
     Indication: GASTRIC DISORDER
     Dosage: AS NEEDED
     Route: 048
     Dates: start: 20060101
  7. HUMIRA [Suspect]
     Dates: end: 20101001
  8. HUMIRA [Suspect]
  9. PREDNISONE [Concomitant]
     Indication: RHEUMATOID ARTHRITIS
     Route: 048
     Dates: start: 19960101
  10. HYDROCHLOROTHIAZIDE [Concomitant]
     Indication: HYPERTENSION
     Route: 048

REACTIONS (7)
  - PAIN [None]
  - BLOOD PRESSURE INCREASED [None]
  - INFLUENZA [None]
  - DIABETES MELLITUS [None]
  - CHEST PAIN [None]
  - HEADACHE [None]
  - GASTRIC DISORDER [None]
